FAERS Safety Report 5404274-X (Version None)
Quarter: 2007Q3

REPORT INFORMATION
  Report Type: 
  Country: None (occurrence: None)
  Receive Date: 20070802
  Receipt Date: 20070727
  Transmission Date: 20080115
  Serious: Yes (Hospitalization)
  Sender: FDA-Public Use
  Company Number: HQWYE638226OCT06

PATIENT
  Age: 45 Year
  Sex: Female

DRUGS (6)
  1. EUPANTOL [Suspect]
     Indication: OESOPHAGITIS
     Route: 048
     Dates: start: 20061011, end: 20061017
  2. DILTIAZEM HCL [Concomitant]
     Indication: ANGINA PECTORIS
     Dosage: UNKNOWN
  3. LEVOTHYROXINE SODIUM [Concomitant]
     Indication: HYPOTHYROIDISM
     Dosage: UNKNOWN
  4. KARDEGIC [Concomitant]
     Indication: ANGINA PECTORIS
     Dosage: UNKNOWN
  5. ACARBOSE [Concomitant]
     Indication: DIABETES MELLITUS
     Dosage: UNKNOWN
  6. ATORVASTATIN CALCIUM [Concomitant]
     Indication: HYPERLIPIDAEMIA
     Dosage: UNKNOWN

REACTIONS (4)
  - CYTOLYTIC HEPATITIS [None]
  - HEPATIC STEATOSIS [None]
  - HEPATOMEGALY [None]
  - SERUM FERRITIN INCREASED [None]
